FAERS Safety Report 4827795-7 (Version None)
Quarter: 2005Q4

REPORT INFORMATION
  Report Type: 
  Country: None (occurrence: None)
  Receive Date: 20051110
  Receipt Date: 20050930
  Transmission Date: 20060501
  Serious: Yes (Other)
  Sender: FDA-Public Use
  Company Number: 2005RL000136

PATIENT
  Age: 75 Year
  Sex: Female
  Weight: 68.0396 kg

DRUGS (8)
  1. DYNACIRC [Suspect]
     Indication: BLOOD PRESSURE ABNORMAL
     Dosage: 5 MG; QD; PO
     Route: 048
     Dates: start: 20050920
  2. METOPROLOL [Concomitant]
  3. HYDROCHLOROTHIAZIDE [Concomitant]
  4. ASPIRIN [Concomitant]
  5. CENTRUM SILVER [Concomitant]
  6. CALTRATE [Concomitant]
  7. IMODIUM A-D [Concomitant]
  8. ANTIVERT [Concomitant]

REACTIONS (5)
  - BACK PAIN [None]
  - CHEST DISCOMFORT [None]
  - CHOLELITHIASIS [None]
  - HERPES ZOSTER [None]
  - MEDICATION RESIDUE [None]
